FAERS Safety Report 7775338-0 (Version None)
Quarter: 2011Q3

REPORT INFORMATION
  Report Type: 
  Country: None (occurrence: None)
  Receive Date: 20110923
  Receipt Date: 20110914
  Transmission Date: 20111222
  Serious: Yes (Disabling)
  Sender: FDA-Public Use
  Company Number: FR-ASTRAZENECA-2011SE45274

PATIENT
  Age: 32353 Day
  Sex: Male

DRUGS (1)
  1. XYLOCAINE [Suspect]
     Indication: ANAESTHESIA
     Dosage: 2%
     Route: 047
     Dates: start: 20110413

REACTIONS (3)
  - BLINDNESS [None]
  - INCORRECT ROUTE OF DRUG ADMINISTRATION [None]
  - ENDOPHTHALMITIS [None]
